FAERS Safety Report 8407747 (Version 2)
Quarter: 2012Q4

REPORT INFORMATION
  Report Type: 
  Country: US (occurrence: US)
  Receive Date: 20120215
  Receipt Date: 20121017
  Transmission Date: 20130627
  Serious: Yes (Other)
  Sender: FDA-Public Use
  Company Number: PHEH2012US002519

PATIENT
  Age: 68 None
  Sex: Male
  Weight: 91.16 kg

DRUGS (11)
  1. GILENYA [Suspect]
     Indication: MULTIPLE SCLEROSIS
     Dosage: 0.5 mg, QD
     Route: 048
     Dates: start: 20120111
  2. BACLOFEN [Concomitant]
     Dosage: 10 mg, BID
     Route: 048
     Dates: start: 20100324
  3. TRAMADOL [Concomitant]
     Dosage: 50 mg, UNK
     Route: 048
  4. IRON [Concomitant]
  5. PHOSPHORUS [Concomitant]
  6. TEMAZEPAM [Concomitant]
     Dosage: 30 mg, QHS
     Route: 048
  7. POTASSIUM [Concomitant]
  8. TRIAMTERENE AND HYDROCHLOROTHIAZID [Concomitant]
     Dosage: 50 mg, UNK
     Route: 048
  9. ANTIHYPERTENSIVES [Concomitant]
  10. NIFEDIPINE [Concomitant]
     Dosage: UNK UKN, UNK
  11. PROSCAR [Concomitant]
     Dosage: UNK UKN, UNK

REACTIONS (7)
  - Pain in extremity [Recovering/Resolving]
  - Headache [Unknown]
  - Cough [Recovering/Resolving]
  - Vision blurred [Recovering/Resolving]
  - Bladder disorder [Unknown]
  - Hypoaesthesia [Unknown]
  - Muscular weakness [Unknown]
